FAERS Safety Report 22016215 (Version 1)
Quarter: 2023Q1

REPORT INFORMATION
  Report Type: Spontaneous
  Country: US (occurrence: US)
  Receive Date: 20230221
  Receipt Date: 20230221
  Transmission Date: 20230417
  Serious: No
  Sender: FDA-Public Use
  Company Number: ALC2022US005774

PATIENT
  Age: 61 Year
  Sex: Female

DRUGS (1)
  1. EYSUVIS [Suspect]
     Active Substance: LOTEPREDNOL ETABONATE
     Indication: Product used for unknown indication
     Dosage: 1 DRP, QID FOR 1 WEEK
     Route: 047

REACTIONS (2)
  - Eye disorder [Unknown]
  - Expired product administered [Unknown]
